FAERS Safety Report 12489287 (Version 2)
Quarter: 2016Q3

REPORT INFORMATION
  Report Type: Spontaneous
  Country: CA (occurrence: CA)
  Receive Date: 20160622
  Receipt Date: 20160802
  Transmission Date: 20161109
  Serious: Yes (Hospitalization, Other)
  Sender: FDA-Public Use
  Company Number: CA-JNJFOC-20160615046

PATIENT
  Age: 31 Year
  Sex: Male

DRUGS (2)
  1. INFLIXIMAB, RECOMBINANT [Suspect]
     Active Substance: INFLIXIMAB
     Indication: COLITIS ULCERATIVE
     Route: 042
  2. INFLIXIMAB, RECOMBINANT [Suspect]
     Active Substance: INFLIXIMAB
     Indication: CROHN^S DISEASE
     Route: 042

REACTIONS (6)
  - Off label use [Unknown]
  - Product use issue [Unknown]
  - Clostridium difficile infection [Recovered/Resolved]
  - Drug ineffective [Unknown]
  - Colectomy [Unknown]
  - Ileostomy [Unknown]

NARRATIVE: CASE EVENT DATE: 201309
